FAERS Safety Report 4665979-1 (Version None)
Quarter: 2005Q2

REPORT INFORMATION
  Report Type: 
  Country: None (occurrence: None)
  Receive Date: 20050517
  Receipt Date: 20050517
  Transmission Date: 20051028
  Serious: No
  Sender: FDA-Public Use
  Company Number: None

PATIENT
  Age: 61 Year
  Sex: Male
  Weight: 103.8737 kg

DRUGS (1)
  1. ALEVE [Suspect]

REACTIONS (3)
  - BLOOD BILIRUBIN INCREASED [None]
  - HEPATOTOXICITY [None]
  - NEPHROPATHY TOXIC [None]
